FAERS Safety Report 6518704-3 (Version None)
Quarter: 2009Q4

REPORT INFORMATION
  Report Type: 
  Country: None (occurrence: None)
  Receive Date: 20091218
  Receipt Date: 20091116
  Transmission Date: 20100525
  Serious: Yes (Hospitalization, Disabling)
  Sender: FDA-Public Use
  Company Number: THQ2009A05163

PATIENT
  Age: 55 Year
  Sex: Male

DRUGS (2)
  1. ZOTON (LANSOPRAZOLE) [Suspect]
     Indication: OESOPHAGEAL ULCER
     Dosage: 30 MG (30 MG, 1 IN 1 D) 1) PER ORAL
     Route: 048
     Dates: start: 19940101
  2. ZANTAC [Suspect]
     Dates: start: 20090801

REACTIONS (6)
  - ABASIA [None]
  - DEPRESSION [None]
  - DRUG EFFECT DECREASED [None]
  - ERECTILE DYSFUNCTION [None]
  - HAEMORRHAGE [None]
  - PAIN IN EXTREMITY [None]
